FAERS Safety Report 9350778 (Version 1)
Quarter: 2013Q2

REPORT INFORMATION
  Report Type: Other
  Country: FR (occurrence: FR)
  Receive Date: 20130617
  Receipt Date: 20130617
  Transmission Date: 20140414
  Serious: Yes (Life-Threatening, Hospitalization)
  Sender: FDA-Public Use
  Company Number: FR-MPIJNJ-2013-04390

PATIENT
  Sex: 0

DRUGS (12)
  1. VELCADE [Suspect]
     Indication: PLASMA CELL MYELOMA
     Dosage: 3.5 MG, UNK
     Route: 058
     Dates: start: 20130225, end: 20130225
  2. MELPHALAN [Suspect]
     Indication: PLASMA CELL MYELOMA
     Dosage: 18 MG, UNK
     Route: 048
     Dates: start: 20130216, end: 20130218
  3. SOLUPRED                           /00016209/ [Concomitant]
     Indication: PLASMA CELL MYELOMA
  4. ZELITREX                           /01269701/ [Concomitant]
  5. LOVENOX [Concomitant]
  6. TAHOR [Concomitant]
  7. AMLOR [Concomitant]
  8. KARDEGIC                           /00002703/ [Concomitant]
  9. INEXIUM                            /01479302/ [Concomitant]
  10. SKENAN [Concomitant]
  11. VOGALENE [Concomitant]
  12. IMPORTAL [Concomitant]

REACTIONS (1)
  - Lung disorder [Unknown]
